FAERS Safety Report 22368507 (Version 9)
Quarter: 2024Q2

REPORT INFORMATION
  Report Type: Spontaneous
  Country: IN (occurrence: IN)
  Receive Date: 20230525
  Receipt Date: 20240625
  Transmission Date: 20240715
  Serious: Yes (Other)
  Sender: FDA-Public Use
  Company Number: IN-PFIZER INC-2020304347

PATIENT
  Age: 50 Year
  Sex: Female

DRUGS (9)
  1. PALBOCICLIB [Suspect]
     Active Substance: PALBOCICLIB
     Indication: Breast cancer metastatic
     Dosage: 125 MG, CYCLIC (DAILY ON DAYS 1 TO 21, EVERY 28 DAYS)
     Route: 048
     Dates: start: 20200808
  2. PALBOCICLIB [Suspect]
     Active Substance: PALBOCICLIB
     Dosage: UNK
     Dates: start: 20210429
  3. PALBOCICLIB [Suspect]
     Active Substance: PALBOCICLIB
     Dosage: 125 MG, 1X/DAY
     Route: 048
     Dates: start: 20210722
  4. PALBOCICLIB [Suspect]
     Active Substance: PALBOCICLIB
     Dosage: 125 MG, CYCLIC (DAILY ON DAYS 1 TO 21, EVERY 28 DAYS)
     Route: 048
     Dates: start: 20211214
  5. LETROZOLE [Concomitant]
     Active Substance: LETROZOLE
     Dosage: 2.5 MG, DAILY
  6. ZOLEDRONIC ACID [Concomitant]
     Active Substance: ZOLEDRONIC ACID
     Dosage: 4 MG, MONTHLY
  7. ZOLEDRONIC ACID [Concomitant]
     Active Substance: ZOLEDRONIC ACID
     Dosage: UNK, (ONCE IN 2 MONTHS)
  8. CALPOL [Concomitant]
     Active Substance: ACETAMINOPHEN
     Indication: Pain
     Dosage: UNK, AS NEEDED
  9. ANASTROZOLE [Concomitant]
     Active Substance: ANASTROZOLE
     Dosage: 2.5 MG, 1X/DAY

REACTIONS (19)
  - Enteritis infectious [Not Recovered/Not Resolved]
  - Cataract [Unknown]
  - Enteritis [Recovering/Resolving]
  - Abdominal discomfort [Unknown]
  - Dermatitis [Unknown]
  - Abdominal pain upper [Unknown]
  - Hyperchlorhydria [Unknown]
  - Mouth ulceration [Unknown]
  - Diarrhoea [Recovering/Resolving]
  - Weight increased [Unknown]
  - Glycosylated haemoglobin increased [Unknown]
  - Pruritus [Unknown]
  - Haemoglobin decreased [Unknown]
  - Vomiting [Recovering/Resolving]
  - Myalgia [Unknown]
  - Pain in extremity [Unknown]
  - Arthralgia [Unknown]
  - Uterine disorder [Unknown]
  - Neoplasm progression [Unknown]

NARRATIVE: CASE EVENT DATE: 20201021
